FAERS Safety Report 9730509 (Version 7)
Quarter: 2014Q4

REPORT INFORMATION
  Report Type: Report from Study
  Country: AR (occurrence: AR)
  Receive Date: 20131202
  Receipt Date: 20141006
  Transmission Date: 20150529
  Serious: Yes (Hospitalization, Other)
  Sender: FDA-Public Use
  Company Number: AR-UCBSA-104109

PATIENT
  Age: 31 Year
  Sex: Male
  Weight: 103.9 kg

DRUGS (4)
  1. PREDNISONE. [Concomitant]
     Active Substance: PREDNISONE
     Indication: RHEUMATOID ARTHRITIS
     Dosage: 7.5 MG, ONCE DAILY (QD)
     Route: 048
     Dates: start: 20130420
  2. CERTOLIZUMAB PEGOL RA [Suspect]
     Active Substance: CERTOLIZUMAB PEGOL
     Indication: RHEUMATOID ARTHRITIS
     Dosage: 16 DOSES
     Route: 058
     Dates: start: 20130703, end: 20131119
  3. MELOXICAM. [Concomitant]
     Active Substance: MELOXICAM
     Indication: RHEUMATOID ARTHRITIS
     Dosage: 15 MG, ONCE DAILY (QD)
     Route: 048
     Dates: start: 20130404
  4. METHOTREXATE [Concomitant]
     Active Substance: METHOTREXATE
     Indication: RHEUMATOID ARTHRITIS

REACTIONS (1)
  - Arthritis infective [Recovering/Resolving]

NARRATIVE: CASE EVENT DATE: 20131114
